FAERS Safety Report 22092659 (Version 1)
Quarter: 2023Q1

REPORT INFORMATION
  Report Type: Report from Study
  Country: US (occurrence: None)
  Receive Date: 20230314
  Receipt Date: 20230314
  Transmission Date: 20230418
  Serious: Yes (Death)
  Sender: FDA-Public Use
  Company Number: US-ROCHE-3307695

PATIENT

DRUGS (3)
  1. ATEZOLIZUMAB [Suspect]
     Active Substance: ATEZOLIZUMAB
     Indication: Renal cell carcinoma
     Dosage: LAST DOSE WAS GIVEN ON 14/NOV/2019.
     Route: 065
     Dates: start: 20170707
  2. BEVACIZUMAB [Suspect]
     Active Substance: BEVACIZUMAB
     Indication: Renal cell carcinoma
     Dosage: LAST DOSE WAS GIVEN ON 14/NOV/2019
     Route: 065
     Dates: start: 20170707
  3. ENTINOSTAT [Suspect]
     Active Substance: ENTINOSTAT
     Indication: Renal cell carcinoma
     Dosage: LAST DOSE WAS GIVEN ON 14/NOV/2019
     Route: 065
     Dates: start: 20170707

REACTIONS (1)
  - Disease progression [Fatal]
